FAERS Safety Report 8286458-9 (Version None)
Quarter: 2012Q2

REPORT INFORMATION
  Report Type: 
  Country: None (occurrence: None)
  Receive Date: 20120416
  Receipt Date: 20120411
  Transmission Date: 20120825
  Serious: Yes (Other)
  Sender: FDA-Public Use
  Company Number: US-PFIZER INC-2012069024

PATIENT
  Sex: Female
  Weight: 46.712 kg

DRUGS (2)
  1. PREMARIN [Suspect]
     Indication: OFF LABEL USE
     Dosage: UNK (10 TABLETS ORALLY TOGETHER)
     Route: 048
     Dates: start: 20120315
  2. PREMARIN [Suspect]
     Indication: MENORRHAGIA
     Dosage: UNK
     Route: 048

REACTIONS (6)
  - CARDIAC DISORDER [None]
  - COLD-STIMULUS HEADACHE [None]
  - HAEMORRHAGE [None]
  - DYSPNOEA [None]
  - EMOTIONAL DISORDER [None]
  - CIRCUMSTANCE OR INFORMATION CAPABLE OF LEADING TO MEDICATION ERROR [None]
